FAERS Safety Report 4650812-4 (Version None)
Quarter: 2005Q2

REPORT INFORMATION
  Report Type: 
  Country: None (occurrence: None)
  Receive Date: 20050503
  Receipt Date: 20050422
  Transmission Date: 20051028
  Serious: Yes (Hospitalization, Disabling)
  Sender: FDA-Public Use
  Company Number: 2004-3165

PATIENT
  Sex: Male

DRUGS (4)
  1. QUILONORM RETARD [Suspect]
     Indication: DEPRESSION
     Dosage: 450MG TWICE PER DAY
     Route: 048
  2. ALLOPURINOL [Concomitant]
     Indication: GOUT
     Dosage: 300MG SEE DOSAGE TEXT
     Route: 048
  3. LEVOTHYROXINE SODIUM [Concomitant]
     Indication: HYPOTHYROIDISM
     Route: 048
  4. INDERAL [Concomitant]
     Indication: TREMOR
     Dosage: 10MG SEE DOSAGE TEXT
     Route: 048

REACTIONS (9)
  - DIABETES INSIPIDUS [None]
  - DIARRHOEA [None]
  - EXTRAPYRAMIDAL DISORDER [None]
  - HYPERCALCAEMIA [None]
  - HYPERGLYCAEMIA [None]
  - HYPOTHYROIDISM [None]
  - MENTAL IMPAIRMENT [None]
  - RENAL FAILURE CHRONIC [None]
  - TREMOR [None]
